FAERS Safety Report 23445092 (Version 1)
Quarter: 2024Q1

REPORT INFORMATION
  Report Type: Spontaneous
  Country: US (occurrence: US)
  Receive Date: 20240125
  Receipt Date: 20240125
  Transmission Date: 20240410
  Serious: No
  Sender: FDA-Public Use
  Company Number: US-OYSTER POINT PHARMA, INC-US-OYS-23-001671

PATIENT
  Sex: Male

DRUGS (1)
  1. TYRVAYA [Suspect]
     Active Substance: VARENICLINE TARTRATE
     Indication: Product used for unknown indication
     Dosage: UNK, UNK
     Route: 045
     Dates: start: 2022

REACTIONS (5)
  - Paranasal sinus discomfort [Unknown]
  - Rhinorrhoea [Unknown]
  - Nasal dryness [Unknown]
  - Nasal discomfort [Unknown]
  - Product delivery mechanism issue [Unknown]
